FAERS Safety Report 18001758 (Version 1)
Quarter: 2020Q3

REPORT INFORMATION
  Report Type: Spontaneous
  Country: DE (occurrence: DE)
  Receive Date: 20200709
  Receipt Date: 20200709
  Transmission Date: 20201103
  Serious: Yes (Hospitalization)
  Sender: FDA-Public Use
  Company Number: DE-MYLANLABS-2020M1061330

PATIENT
  Age: 68 Year
  Sex: Male

DRUGS (14)
  1. PANTOPRAZOLE [Suspect]
     Active Substance: PANTOPRAZOLE
     Indication: PRODUCT USED FOR UNKNOWN INDICATION
     Dosage: 40 MG, 1?0?0?0
  2. VITAMIN B COMPLEX NOS [Concomitant]
     Active Substance: CYANOCOBALAMIN\PYRIDOXINE HYDROCHLORIDE\RIBOFLAVIN\SODIUM PANTOTHENATE\THIAMINE HYDROCHLORIDE\VITAMIN B COMPLEX
     Dosage: NK MG, 1?0?0?0
  3. SOLEDUM [Concomitant]
     Active Substance: EUCALYPTOL
     Dosage: NK MG, 1?0?0?0, KAPSELN
  4. EISEN                              /00023501/ [Concomitant]
     Active Substance: IRON
     Dosage: 35 MG, 1?0?0?0
  5. TAMSULOSIN [Concomitant]
     Active Substance: TAMSULOSIN
     Dosage: 0.4 MG, 1?0?0?0
  6. FOLSAEURE [Concomitant]
     Active Substance: FOLIC ACID
     Dosage: 5 MG / WOCHE, 1X
  7. EPIPEVISONE [Concomitant]
     Dosage: 10|1 MG, NK, SALBE
  8. METHOTREXATE. [Suspect]
     Active Substance: METHOTREXATE
     Indication: PRODUCT USED FOR UNKNOWN INDICATION
     Dosage: 15 MG / WOCHE, 1X
  9. COLECALCIFEROL [Concomitant]
     Active Substance: CHOLECALCIFEROL
     Dosage: NK MG, 1?0?0?0
  10. TRIAMTEREN [Concomitant]
     Active Substance: TRIAMTERENE
     Dosage: 10 MG, 1?0?0?0
  11. RAMIPRIL. [Concomitant]
     Active Substance: RAMIPRIL
     Dosage: 5 MG, 1?0?0?0
  12. MAGNESIUM VERLA                    /01486801/ [Concomitant]
     Dosage: NK MG, 1?0?0?0
  13. PROSTAGUTT FORTE [Concomitant]
     Active Substance: HERBALS
     Dosage: 80|60 MG, 1?0?0?0
  14. APIXABAN [Suspect]
     Active Substance: APIXABAN
     Indication: PRODUCT USED FOR UNKNOWN INDICATION
     Dosage: 10 MG, 1?0?1?0

REACTIONS (2)
  - Dyspnoea [Unknown]
  - Chest pain [Unknown]
